FAERS Safety Report 10455500 (Version 1)
Quarter: 2014Q3

REPORT INFORMATION
  Report Type: Spontaneous
  Country: US (occurrence: None)
  Receive Date: 20140815
  Receipt Date: 20140815
  Transmission Date: 20150326
  Serious: No
  Sender: FDA-Public Use
  Company Number: E2007-01683-SPO-US

PATIENT
  Age: 57 Year
  Sex: Male

DRUGS (1)
  1. FYCOMPA [Suspect]
     Active Substance: PERAMPANEL
     Indication: EPILEPSY
     Route: 048
     Dates: start: 20140408, end: 20140529

REACTIONS (3)
  - Irritability [None]
  - Libido increased [None]
  - Weight increased [None]

NARRATIVE: CASE EVENT DATE: 20140415
